FAERS Safety Report 22139035 (Version 1)
Quarter: 2023Q1

REPORT INFORMATION
  Report Type: Spontaneous
  Country: JP (occurrence: JP)
  Receive Date: 20230327
  Receipt Date: 20230327
  Transmission Date: 20230417
  Serious: Yes (Death, Other)
  Sender: FDA-Public Use
  Company Number: JP-BRISTOL-MYERS SQUIBB COMPANY-2023-026815

PATIENT
  Age: 75 Year
  Sex: Female
  Weight: 35.4 kg

DRUGS (8)
  1. ELIQUIS [Suspect]
     Active Substance: APIXABAN
     Indication: Ventricular tachycardia
     Dosage: UNK
     Route: 048
     Dates: start: 20200226, end: 20201112
  2. VYNDAQEL [Suspect]
     Active Substance: TAFAMIDIS MEGLUMINE
     Indication: Cardiac amyloidosis
     Dosage: 80 MG, 1X/DAY
     Dates: start: 20190815, end: 20201112
  3. BISOPROLOL FUMARATE [Concomitant]
     Active Substance: BISOPROLOL FUMARATE
     Dosage: UNK
     Route: 048
     Dates: end: 20201112
  4. SPIRONOLACTONE [Concomitant]
     Active Substance: SPIRONOLACTONE
     Dosage: UNK
     Route: 048
     Dates: end: 20201112
  5. ATORVASTATIN [Concomitant]
     Active Substance: ATORVASTATIN
     Dosage: UNK
     Route: 048
     Dates: end: 20201112
  6. CIFENLINE SUCCINATE [Concomitant]
     Active Substance: CIFENLINE SUCCINATE
     Dosage: UNK
     Route: 048
     Dates: end: 20201112
  7. FEBUXOSTAT [Concomitant]
     Active Substance: FEBUXOSTAT
     Dosage: UNK
     Route: 048
     Dates: end: 20201112
  8. VONOPRAZAN FUMARATE [Concomitant]
     Active Substance: VONOPRAZAN FUMARATE
     Dosage: UNK
     Route: 048
     Dates: end: 20201112

REACTIONS (3)
  - Septic shock [Fatal]
  - Atrial tachycardia [Unknown]
  - Off label use [Unknown]

NARRATIVE: CASE EVENT DATE: 20200226
